FAERS Safety Report 8380229-0 (Version None)
Quarter: 2012Q2

REPORT INFORMATION
  Report Type: 
  Country: None (occurrence: None)
  Receive Date: 20120523
  Receipt Date: 20120523
  Transmission Date: 20120825
  Serious: Yes (Death, Other)
  Sender: FDA-Public Use
  Company Number: PHHY2012AU043103

PATIENT
  Sex: Male

DRUGS (1)
  1. CLOZARIL [Suspect]
     Dosage: 325 MG
     Dates: start: 19930407

REACTIONS (3)
  - HAEMATEMESIS [None]
  - DEATH [None]
  - GASTRIC HAEMORRHAGE [None]
